FAERS Safety Report 8836971 (Version 3)
Quarter: 2012Q4

REPORT INFORMATION
  Report Type: 
  Country: US (occurrence: US)
  Receive Date: 20121012
  Receipt Date: 20121025
  Transmission Date: 20130627
  Serious: Yes (Death)
  Sender: FDA-Public Use
  Company Number: US-SANOFI-AVENTIS-2012SA065200

PATIENT
  Age: 67 Year
  Sex: Male
  Weight: 98 kg

DRUGS (12)
  1. LOVENOX [Suspect]
     Indication: PROPHYLAXIS
     Route: 065
     Dates: start: 20120903, end: 20120904
  2. LOVENOX [Suspect]
     Indication: PROPHYLAXIS
     Route: 065
     Dates: start: 20120905, end: 20120905
  3. LOVENOX [Suspect]
     Indication: PROPHYLAXIS
     Route: 065
     Dates: start: 20120907, end: 20120908
  4. VYTORIN [Concomitant]
     Dosage: Dosage: Ezetimibe + Simvastatin (10 mg + 80 mg)
  5. AVODART [Concomitant]
  6. FUROSEMIDE [Concomitant]
  7. COUMADIN [Concomitant]
  8. CARVEDILOL [Concomitant]
  9. METFORMIN [Concomitant]
  10. PLAVIX [Concomitant]
  11. POTASSIUM [Concomitant]
  12. MICARDIS [Concomitant]

REACTIONS (3)
  - Death [Fatal]
  - Nausea [Recovered/Resolved]
  - Injection site haemorrhage [Recovered/Resolved]
